FAERS Safety Report 6619564-2 (Version None)
Quarter: 2010Q1

REPORT INFORMATION
  Report Type: 
  Country: None (occurrence: None)
  Receive Date: 20100309
  Receipt Date: 20100303
  Transmission Date: 20100710
  Serious: Yes (Other)
  Sender: FDA-Public Use
  Company Number: IN-ROXANE LABORATORIES, INC.-2010-RO-00230RO

PATIENT
  Age: 32 Year
  Sex: Male

DRUGS (7)
  1. MYCOPHENOLATE MOFETIL [Suspect]
     Indication: PROPHYLAXIS AGAINST TRANSPLANT REJECTION
     Dosage: 2000 MG
  2. VALPROATE SODIUM [Suspect]
     Indication: CONVULSION
     Dates: start: 20060501
  3. PREDNISOLONE [Suspect]
  4. TACROLIMUS [Suspect]
  5. METHYLPREDNISOLONE [Suspect]
     Indication: TRANSPLANT REJECTION
  6. MYCOPHENOLATE SODIUM [Suspect]
     Dosage: 1440 MG
  7. CLOBAZAM [Suspect]
     Indication: CONVULSION
     Dosage: 10 MG

REACTIONS (2)
  - DRUG INTERACTION [None]
  - TRANSPLANT REJECTION [None]
